FAERS Safety Report 9948957 (Version 1)
Quarter: 2014Q1

REPORT INFORMATION
  Report Type: Report from Study
  Country: US (occurrence: US)
  Receive Date: 20140304
  Receipt Date: 20140304
  Transmission Date: 20141002
  Serious: Yes (Other)
  Sender: FDA-Public Use
  Company Number: US-ROCHE-1353324

PATIENT
  Sex: Male

DRUGS (8)
  1. AVASTIN [Suspect]
     Indication: GLIOBLASTOMA
     Dosage: 575-600 MG
     Route: 042
     Dates: start: 201210
  2. CARBOPLATIN [Concomitant]
     Route: 042
  3. CARBOPLATIN [Concomitant]
     Route: 042
  4. DEXAMETHASONE [Concomitant]
     Dosage: DOSE: 10Q
     Route: 042
  5. FOSAPREPITANT DIMEGLUMINE [Concomitant]
     Route: 042
  6. PALONOSETRON HYDROCHLORIDE [Concomitant]
     Route: 042
  7. ATIVAN [Concomitant]
     Route: 042
  8. KEPPRA [Concomitant]
     Route: 042

REACTIONS (8)
  - Thrombocytopenia [Unknown]
  - Neutropenia [Unknown]
  - Leukopenia [Unknown]
  - Convulsion [Unknown]
  - Anaemia [Unknown]
  - Haemoglobin decreased [Unknown]
  - Haematocrit decreased [Unknown]
  - Platelet count decreased [Unknown]
